FAERS Safety Report 21229394 (Version 1)
Quarter: 2022Q3

REPORT INFORMATION
  Report Type: Spontaneous
  Country: US (occurrence: US)
  Receive Date: 20220818
  Receipt Date: 20220818
  Transmission Date: 20221026
  Serious: Yes (Other)
  Sender: FDA-Public Use
  Company Number: US-PFIZER INC-PV202200043951

PATIENT
  Age: 24 Year
  Sex: Male
  Weight: 74.8 kg

DRUGS (7)
  1. NAFARELIN ACETATE [Suspect]
     Active Substance: NAFARELIN ACETATE
     Indication: Hormone level abnormal
     Dosage: UNK
     Route: 045
     Dates: start: 202107
  2. REXULTI [Suspect]
     Active Substance: BREXPIPRAZOLE
     Indication: Depression
     Dosage: 1 MG
     Dates: start: 20220712
  3. REXULTI [Suspect]
     Active Substance: BREXPIPRAZOLE
     Dosage: 2 MG, 1X/DAY (AT NIGHT)
     Dates: start: 20220719
  4. CLOMID [Suspect]
     Active Substance: CLOMIPHENE CITRATE
     Indication: Hormone level abnormal
     Dosage: UNK
     Dates: start: 202107
  5. FINASTERIDE [Concomitant]
     Active Substance: FINASTERIDE
     Dosage: UNK
  6. WELLBUTRIN [Concomitant]
     Active Substance: BUPROPION HYDROCHLORIDE
  7. GABAPENTIN [Concomitant]
     Active Substance: GABAPENTIN

REACTIONS (4)
  - Fatigue [Not Recovered/Not Resolved]
  - Blood oestrogen increased [Unknown]
  - Nasal congestion [Not Recovered/Not Resolved]
  - Pain [Not Recovered/Not Resolved]

NARRATIVE: CASE EVENT DATE: 20220701
